FAERS Safety Report 6715172-3 (Version None)
Quarter: 2010Q2

REPORT INFORMATION
  Report Type: 
  Country: None (occurrence: None)
  Receive Date: 20100506
  Receipt Date: 20100506
  Transmission Date: 20101027
  Serious: Yes (Other)
  Sender: FDA-Public Use
  Company Number: None

PATIENT
  Sex: Female
  Weight: 91.6266 kg

DRUGS (1)
  1. NUVIGIL [Suspect]
     Indication: FATIGUE
     Dosage: 150MG 1 ADAY
     Dates: start: 20100311

REACTIONS (2)
  - OROPHARYNGEAL BLISTERING [None]
  - SKIN EXFOLIATION [None]
